FAERS Safety Report 25389351 (Version 1)
Quarter: 2025Q2

REPORT INFORMATION
  Report Type: Spontaneous
  Country: US (occurrence: US)
  Receive Date: 20250603
  Receipt Date: 20250603
  Transmission Date: 20250717
  Serious: Yes (Other)
  Sender: SANOFI AVENTIS
  Company Number: US-SA-2025SA156656

PATIENT
  Age: 17 Year
  Sex: Female

DRUGS (1)
  1. FABRAZYME [Suspect]
     Active Substance: AGALSIDASE BETA
     Dosage: 50 MG, BIM
     Route: 065

REACTIONS (1)
  - Atypical pneumonia [Unknown]

NARRATIVE: CASE EVENT DATE: 20250101
